FAERS Safety Report 19154510 (Version 9)
Quarter: 2021Q3

REPORT INFORMATION
  Report Type: Report from Study
  Country: MX (occurrence: MX)
  Receive Date: 20210419
  Receipt Date: 20210909
  Transmission Date: 20211014
  Serious: Yes (Other)
  Sender: FDA-Public Use
  Company Number: MX-BAYER-2021-123724

PATIENT
  Age: 59 Year
  Sex: Female

DRUGS (6)
  1. NEXAVAR [Suspect]
     Active Substance: SORAFENIB
     Indication: THYROID CANCER
     Dosage: 200 MG, BID
     Dates: start: 20210414, end: 20210417
  2. LEVOTHYROXINE SODIUM. [Concomitant]
     Active Substance: LEVOTHYROXINE SODIUM
     Indication: THYROID CANCER
     Dosage: 100 MCG EVERY 24 HOURS
     Route: 048
     Dates: start: 20210314
  3. NEXAVAR [Suspect]
     Active Substance: SORAFENIB
     Indication: THYROID CANCER
     Dosage: 400 MG BID
     Route: 048
     Dates: start: 20210422, end: 20210614
  4. NEXAVAR [Suspect]
     Active Substance: SORAFENIB
     Indication: THYROID CANCER
     Dosage: 400 MG BID
     Route: 048
     Dates: start: 2021, end: 20210818
  5. NEXAVAR [Suspect]
     Active Substance: SORAFENIB
     Indication: THYROID CANCER
     Dosage: 400 MG, BID
     Dates: start: 20210215
  6. CALCIO [CALCIUM CARBONATE] [Concomitant]
     Active Substance: CALCIUM CARBONATE
     Indication: SUPPLEMENTATION THERAPY
     Dosage: 1 EFFERVESCENT TABLET EVERY 24 HOURS
     Route: 048
     Dates: start: 20210314

REACTIONS (28)
  - Dry throat [Recovering/Resolving]
  - Diarrhoea [Recovered/Resolved]
  - Genital pain [Not Recovered/Not Resolved]
  - Dizziness [Recovered/Resolved]
  - Dry mouth [Recovering/Resolving]
  - Skin ulcer [Recovering/Resolving]
  - Inflammation [Recovered/Resolved]
  - Pain in extremity [Recovering/Resolving]
  - Inflammation [Recovered/Resolved]
  - Skin ulcer [Recovering/Resolving]
  - Headache [Recovered/Resolved]
  - Neck pain [Recovering/Resolving]
  - Dry skin [Recovering/Resolving]
  - Alopecia [Not Recovered/Not Resolved]
  - Tinnitus [Recovered/Resolved]
  - Diarrhoea [Not Recovered/Not Resolved]
  - Pain in extremity [Recovered/Resolved]
  - Pain in extremity [Recovered/Resolved]
  - Nausea [Recovered/Resolved]
  - Secretion discharge [Recovered/Resolved]
  - Pain in extremity [Recovering/Resolving]
  - Dizziness [Recovered/Resolved]
  - Pruritus [Not Recovered/Not Resolved]
  - Flatulence [Recovered/Resolved]
  - Stomatitis [Recovering/Resolving]
  - Inflammation [Recovered/Resolved]
  - Pain in extremity [Not Recovered/Not Resolved]
  - Inflammation [Recovering/Resolving]

NARRATIVE: CASE EVENT DATE: 20210215
